FAERS Safety Report 4570733-5 (Version None)
Quarter: 2005Q1

REPORT INFORMATION
  Report Type: 
  Country: None (occurrence: None)
  Receive Date: 20050202
  Receipt Date: 20050128
  Transmission Date: 20050727
  Serious: Yes (Death, Life-Threatening)
  Sender: FDA-Public Use
  Company Number: FRWYE378928JAN05

PATIENT
  Age: 63 Year
  Sex: Male

DRUGS (4)
  1. TAZOCILLINE (PIPERACILLIN/TAZOBACTAM, INJECTION) [Suspect]
     Indication: SKIN INFECTION
     Route: 042
     Dates: start: 20040527, end: 20040601
  2. CIFLOX (CIPROFLOXACIN, , 0) [Suspect]
     Indication: SKIN INFECTION
     Dosage: 800 MG 1X PER 1 DAY
     Dates: start: 20040523, end: 20040601
  3. NEXIUM [Suspect]
     Dosage: ORAL
     Route: 048
     Dates: start: 20040514, end: 20040618
  4. ROCEPHIN [Concomitant]

REACTIONS (1)
  - DRUG RASH WITH EOSINOPHILIA AND SYSTEMIC SYMPTOMS [None]
